FAERS Safety Report 18086636 (Version 2)
Quarter: 2020Q3

REPORT INFORMATION
  Report Type: Spontaneous
  Country: IE (occurrence: IE)
  Receive Date: 20200729
  Receipt Date: 20200817
  Transmission Date: 20201103
  Serious: Yes (Other)
  Sender: FDA-Public Use
  Company Number: IE-ACCORD-192685

PATIENT
  Sex: Male

DRUGS (5)
  1. NUPRIN [Suspect]
     Active Substance: IBUPROFEN
     Indication: STENT PLACEMENT
     Dosage: HAD BEEN TAKING SINCE THE END OF 2017. RECENTLY CHANGED BRAND, STRENGTH: 75 MG
     Route: 048
     Dates: start: 2017
  2. ESOMEPRAZOLE KRKA [Concomitant]
     Indication: GASTROINTESTINAL DISORDER PROPHYLAXIS
     Dosage: STRENGTH: 40 MG, PATIENT HAS TEMPORARILY STOPPED TAKING
     Route: 048
  3. ROSUVASTATIN. [Suspect]
     Active Substance: ROSUVASTATIN
     Indication: STENT PLACEMENT
     Route: 048
     Dates: start: 2017
  4. ACETYLSALICYLIC ACID [Suspect]
     Active Substance: ASPIRIN
     Indication: STENT PLACEMENT
     Dosage: STRENGTH: 75 MG
     Route: 048
  5. ROSUVASTATIN KRKA [Suspect]
     Active Substance: ROSUVASTATIN CALCIUM
     Indication: STENT PLACEMENT
     Dosage: TAKING SINCE THE END OF 2017. RECENTLY CHANGED BRAND, STRENGTH: 10 MG
     Route: 048
     Dates: start: 2017

REACTIONS (6)
  - Hypoacusis [Not Recovered/Not Resolved]
  - Product substitution issue [Unknown]
  - Tinnitus [Not Recovered/Not Resolved]
  - Ear congestion [Not Recovered/Not Resolved]
  - Muscle disorder [Recovering/Resolving]
  - Myalgia [Recovering/Resolving]
